FAERS Safety Report 21907013 (Version 1)
Quarter: 2023Q1

REPORT INFORMATION
  Report Type: Spontaneous
  Country: SA (occurrence: SA)
  Receive Date: 20230125
  Receipt Date: 20230125
  Transmission Date: 20230417
  Serious: Yes (Other)
  Sender: FDA-Public Use
  Company Number: SA-Hikma Pharmaceuticals-SA-H14001-23-00145

PATIENT
  Age: 12 Year
  Sex: Male

DRUGS (1)
  1. METHYLPREDNISOLONE [Suspect]
     Active Substance: METHYLPREDNISOLONE
     Indication: Vogt-Koyanagi-Harada disease
     Route: 042

REACTIONS (2)
  - Hyperglycaemia [Recovered/Resolved]
  - Diabetes insipidus [Recovered/Resolved]
